FAERS Safety Report 13259256 (Version 1)
Quarter: 2017Q1

REPORT INFORMATION
  Report Type: Spontaneous
  Country: US (occurrence: US)
  Receive Date: 20170222
  Receipt Date: 20170222
  Transmission Date: 20170428
  Serious: No
  Sender: FDA-Public Use
  Company Number: US-PFIZER INC-2017070849

PATIENT
  Age: 37 Year
  Sex: Female

DRUGS (1)
  1. ESTRING [Suspect]
     Active Substance: ESTRADIOL
     Indication: OVARIAN FAILURE
     Dosage: UNK
     Dates: start: 201612, end: 20170206

REACTIONS (2)
  - Oestradiol increased [Unknown]
  - Product use issue [Unknown]

NARRATIVE: CASE EVENT DATE: 201612
